FAERS Safety Report 8563742-2 (Version None)
Quarter: 2012Q3

REPORT INFORMATION
  Report Type: 
  Country: None (occurrence: None)
  Receive Date: 20120803
  Receipt Date: 20120730
  Transmission Date: 20120928
  Serious: No
  Sender: FDA-Public Use
  Company Number: US-BIOGENIDEC-2012BI028257

PATIENT
  Sex: Female

DRUGS (3)
  1. AVONEX [Suspect]
     Indication: MULTIPLE SCLEROSIS
     Route: 030
     Dates: start: 19991015, end: 20030801
  2. IBUPROFEN [Concomitant]
     Indication: PREMEDICATION
  3. AVONEX [Suspect]
     Route: 030
     Dates: start: 20030801, end: 20120401

REACTIONS (5)
  - MIGRAINE [None]
  - STRESS [None]
  - HEADACHE [None]
  - HYPOAESTHESIA [None]
  - PARAESTHESIA [None]
